FAERS Safety Report 4685923-0 (Version None)
Quarter: 2005Q2

REPORT INFORMATION
  Report Type: 
  Country: None (occurrence: None)
  Receive Date: 20050606
  Receipt Date: 20050523
  Transmission Date: 20051028
  Serious: Yes (Disabling)
  Sender: FDA-Public Use
  Company Number: HQWYE568205MAY05

PATIENT
  Age: 31 Year
  Sex: Female
  Weight: 77.18 kg

DRUGS (9)
  1. EFFEXOR XR [Suspect]
     Indication: ANXIETY
     Dosage: SEE IMAGE
     Route: 048
     Dates: start: 20030101, end: 20050101
  2. EFFEXOR XR [Suspect]
     Indication: POSTPARTUM DEPRESSION
     Dosage: SEE IMAGE
     Route: 048
     Dates: start: 20030101, end: 20050101
  3. EFFEXOR XR [Suspect]
     Indication: ANXIETY
     Dosage: SEE IMAGE
     Route: 048
     Dates: start: 20050101, end: 20050301
  4. EFFEXOR XR [Suspect]
     Indication: POSTPARTUM DEPRESSION
     Dosage: SEE IMAGE
     Route: 048
     Dates: start: 20050101, end: 20050301
  5. EFFEXOR XR [Suspect]
     Indication: ANXIETY
     Dosage: SEE IMAGE
     Route: 048
     Dates: start: 20050301, end: 20050301
  6. EFFEXOR XR [Suspect]
     Indication: POSTPARTUM DEPRESSION
     Dosage: SEE IMAGE
     Route: 048
     Dates: start: 20050301, end: 20050301
  7. EFFEXOR XR [Suspect]
     Indication: ANXIETY
     Dosage: SEE IMAGE
     Route: 048
     Dates: start: 20050301, end: 20050301
  8. EFFEXOR XR [Suspect]
     Indication: POSTPARTUM DEPRESSION
     Dosage: SEE IMAGE
     Route: 048
     Dates: start: 20050301, end: 20050301
  9. VICODIN [Concomitant]

REACTIONS (8)
  - ACTIVITIES OF DAILY LIVING IMPAIRED [None]
  - AGGRESSION [None]
  - APATHY [None]
  - CRYING [None]
  - DISTURBANCE IN ATTENTION [None]
  - DRUG WITHDRAWAL SYNDROME [None]
  - MOOD SWINGS [None]
  - VISION BLURRED [None]
